FAERS Safety Report 7623068-8 (Version None)
Quarter: 2011Q3

REPORT INFORMATION
  Report Type: 
  Country: None (occurrence: None)
  Receive Date: 20110720
  Receipt Date: 20110714
  Transmission Date: 20111222
  Serious: Yes (Death, Hospitalization)
  Sender: FDA-Public Use
  Company Number: US-GILEAD-2011-0040953

PATIENT
  Sex: Female

DRUGS (4)
  1. VENTAVIS [Concomitant]
  2. REVATIO [Concomitant]
  3. LETAIRIS [Suspect]
     Indication: PULMONARY ARTERIAL HYPERTENSION
     Route: 048
     Dates: start: 20110503, end: 20110626
  4. ADCIRCA [Concomitant]

REACTIONS (2)
  - RESPIRATORY FAILURE [None]
  - CEREBROVASCULAR ACCIDENT [None]
